FAERS Safety Report 8101446-0 (Version None)
Quarter: 2012Q1

REPORT INFORMATION
  Report Type: 
  Country: None (occurrence: None)
  Receive Date: 20120129
  Receipt Date: 20111009
  Transmission Date: 20120608
  Serious: No
  Sender: FDA-Public Use
  Company Number: US-ABBOTT-11P-163-0862983-00

PATIENT
  Age: 28 Year
  Sex: Female

DRUGS (7)
  1. HYDROCODEINE [Concomitant]
     Indication: PAIN
  2. HUMIRA [Suspect]
     Indication: PSORIATIC ARTHROPATHY
     Dates: start: 20111009
  3. METHOTREXATE [Concomitant]
     Indication: PSORIATIC ARTHROPATHY
  4. OXYCONDONE [Concomitant]
     Indication: PAIN
     Dosage: 5/400 AS NEEDED
  5. LOESTRINE BIRTH CONTROL [Concomitant]
     Indication: PRODUCT USED FOR UNKNOWN INDICATION
  6. ZOLPIDEM [Concomitant]
     Indication: SLEEP DISORDER
  7. VALACYCLOVIR [Concomitant]
     Indication: HERPES SIMPLEX

REACTIONS (1)
  - INJECTION SITE PAIN [None]
